FAERS Safety Report 5273226-5 (Version None)
Quarter: 2007Q1

REPORT INFORMATION
  Report Type: 
  Country: None (occurrence: None)
  Receive Date: 20070322
  Receipt Date: 20070314
  Transmission Date: 20070707
  Serious: Yes (Other)
  Sender: FDA-Public Use
  Company Number: CA-MERCK-0702CAN00046

PATIENT
  Age: 70 Year
  Sex: Female

DRUGS (9)
  1. COZAAR [Suspect]
     Indication: HYPERTENSION
     Route: 048
     Dates: start: 20061218, end: 20070114
  2. COZAAR [Suspect]
     Route: 048
     Dates: start: 20070115, end: 20070212
  3. COZAAR [Suspect]
     Route: 048
     Dates: start: 20070212
  4. OMEPRAZOLE MAGNESIUM [Concomitant]
     Indication: GASTROOESOPHAGEAL REFLUX DISEASE
     Route: 065
     Dates: start: 20000101, end: 20070301
  5. ZOCOR [Concomitant]
     Indication: HYPERCHOLESTEROLAEMIA
     Route: 065
     Dates: start: 20060424
  6. HYZAAR [Concomitant]
     Indication: HYPERTENSION
     Route: 048
     Dates: start: 20060212
  7. HYDROCHLOROTHIAZIDE AND VALSARTAN [Concomitant]
     Indication: HYPERTENSION
     Route: 065
     Dates: start: 20061120, end: 20061217
  8. TELITHROMYCIN [Concomitant]
     Indication: PNEUMONIA
     Route: 065
     Dates: start: 20061201, end: 20061210
  9. AMLODIPINE BESYLATE [Concomitant]
     Indication: HYPERTENSION
     Route: 065
     Dates: start: 20060424, end: 20061217

REACTIONS (2)
  - ATRIAL FIBRILLATION [None]
  - VASCULAR DEMENTIA [None]
